FAERS Safety Report 10477537 (Version 19)
Quarter: 2016Q3

REPORT INFORMATION
  Report Type: Report from Study
  Country: IL (occurrence: IL)
  Receive Date: 20140926
  Receipt Date: 20160705
  Transmission Date: 20161109
  Serious: Yes (Hospitalization)
  Sender: FDA-Public Use
  Company Number: PHHY2013IL113135

PATIENT
  Age: 57 Year
  Sex: Male
  Weight: 94.6 kg

DRUGS (2)
  1. TASIGNA [Suspect]
     Active Substance: NILOTINIB
     Dosage: 400 MG, BID
     Route: 048
     Dates: start: 200907
  2. TASIGNA [Suspect]
     Active Substance: NILOTINIB
     Indication: CHRONIC MYELOID LEUKAEMIA
     Dosage: 400 MG, BID
     Route: 048
     Dates: start: 20090225

REACTIONS (8)
  - Muscle spasms [Recovered/Resolved]
  - Blood cholesterol increased [Recovering/Resolving]
  - Pain [Recovered/Resolved]
  - Chest discomfort [Recovering/Resolving]
  - Oedema peripheral [Not Recovered/Not Resolved]
  - Low density lipoprotein increased [Unknown]
  - Hypercholesterolaemia [Unknown]
  - Arthralgia [Not Recovered/Not Resolved]

NARRATIVE: CASE EVENT DATE: 201403
